FAERS Safety Report 8258881-X (Version None)
Quarter: 2012Q2

REPORT INFORMATION
  Report Type: 
  Country: None (occurrence: None)
  Receive Date: 20120404
  Receipt Date: 20120402
  Transmission Date: 20120825
  Serious: Yes (Other)
  Sender: FDA-Public Use
  Company Number: NO-PFIZER INC-2012066873

PATIENT
  Age: 67 Year
  Sex: Male

DRUGS (2)
  1. SUNITINIB MALATE [Suspect]
     Indication: RENAL CANCER METASTATIC
     Dosage: 50 MG, DAILY, FOR 4 WEEKS WITH 2 WEEKS BREAK
  2. ZOLEDRONOC ACID [Suspect]
     Indication: METASTASES TO BONE

REACTIONS (4)
  - EXPOSED BONE IN JAW [None]
  - ORAL PAIN [None]
  - OSTEONECROSIS OF JAW [None]
  - MUCOSAL HAEMORRHAGE [None]
